FAERS Safety Report 7829326-6 (Version None)
Quarter: 2011Q4

REPORT INFORMATION
  Report Type: 
  Country: None (occurrence: None)
  Receive Date: 20111020
  Receipt Date: 20111019
  Transmission Date: 20120403
  Serious: Yes (Death, Hospitalization, Congenital Anomaly)
  Sender: FDA-Public Use
  Company Number: US-ABBOTT-11P-163-0866451-00

PATIENT
  Sex: Male

DRUGS (1)
  1. HUMIRA [Suspect]
     Indication: MATERNAL EXPOSURE DURING PREGNANCY
     Route: 064

REACTIONS (8)
  - CONGENITAL SPINAL FUSION [None]
  - VENTRICULAR SEPTAL DEFECT [None]
  - ANAL ATRESIA [None]
  - MULTI-ORGAN FAILURE [None]
  - EAR MALFORMATION [None]
  - CEREBRAL HAEMORRHAGE [None]
  - KIDNEY MALFORMATION [None]
  - MATERNAL EXPOSURE DURING PREGNANCY [None]
